FAERS Safety Report 12375993 (Version 1)
Quarter: 2016Q2

REPORT INFORMATION
  Report Type: Spontaneous
  Country: US (occurrence: None)
  Receive Date: 20160516
  Receipt Date: 20160516
  Transmission Date: 20160815
  Serious: Yes (Disabling)
  Sender: FDA-Public Use
  Company Number: None

PATIENT
  Age: 37 Year
  Sex: Female
  Weight: 90.72 kg

DRUGS (1)
  1. LEVOFLOXACIN 500MG TABLET, 500 MG ZYDUS PHARMACE [Suspect]
     Active Substance: LEVOFLOXACIN
     Indication: GASTROINTESTINAL INFECTION
     Dosage: 10 TABLET(S) ONCE A DAY TAKEN BY MOUTH
     Route: 048
     Dates: start: 20160224, end: 20160301

REACTIONS (4)
  - Activities of daily living impaired [None]
  - Muscle spasms [None]
  - Arthralgia [None]
  - Muscle tightness [None]

NARRATIVE: CASE EVENT DATE: 20160227
